APPROVED DRUG PRODUCT: PHENTERMINE HYDROCHLORIDE
Active Ingredient: PHENTERMINE HYDROCHLORIDE
Strength: 30MG
Dosage Form/Route: CAPSULE;ORAL
Application: A087022 | Product #001
Applicant: LANNETT CO INC
Approved: Feb 3, 1983 | RLD: No | RS: No | Type: DISCN